FAERS Safety Report 21981464 (Version 3)
Quarter: 2023Q1

REPORT INFORMATION
  Report Type: Spontaneous
  Country: CA (occurrence: CA)
  Receive Date: 20230211
  Receipt Date: 20230331
  Transmission Date: 20230418
  Serious: Yes (Other)
  Sender: FDA-Public Use
  Company Number: CA-AMGEN-CANSP2022221941

PATIENT
  Age: 60 Year
  Sex: Female

DRUGS (1)
  1. REPATHA [Suspect]
     Active Substance: EVOLOCUMAB
     Indication: Hypercholesterolaemia
     Dosage: 140 MILLIGRAM PER MILLILITER
     Route: 065
     Dates: start: 20221204

REACTIONS (15)
  - Throat tightness [Unknown]
  - Swelling of eyelid [Not Recovered/Not Resolved]
  - Visual impairment [Not Recovered/Not Resolved]
  - Periorbital swelling [Recovering/Resolving]
  - Erythema [Recovering/Resolving]
  - Urticaria [Not Recovered/Not Resolved]
  - Eyelid pain [Unknown]
  - Deformity [Unknown]
  - Madarosis [Unknown]
  - Food allergy [Unknown]
  - Pain [Unknown]
  - Fluid retention [Unknown]
  - Swelling face [Unknown]
  - Dry skin [Unknown]
  - Skin burning sensation [Unknown]

NARRATIVE: CASE EVENT DATE: 20221204
